FAERS Safety Report 8922891 (Version 1)
Quarter: 2012Q4

REPORT INFORMATION
  Report Type: 
  Country: NL (occurrence: NL)
  Receive Date: 20121125
  Receipt Date: 20121125
  Transmission Date: 20130627
  Serious: No
  Sender: FDA-Public Use
  Company Number: NL-SANOFI-AVENTIS-2012SA083441

PATIENT
  Sex: Male

DRUGS (1)
  1. ARAVA [Suspect]
     Indication: DRUG USE FOR UNKNOWN INDICATION
     Route: 048

REACTIONS (1)
  - Exposure via father [Unknown]
